FAERS Safety Report 7816994-8 (Version None)
Quarter: 2011Q4

REPORT INFORMATION
  Report Type: 
  Country: None (occurrence: None)
  Receive Date: 20111017
  Receipt Date: 20111012
  Transmission Date: 20120403
  Serious: Yes (Death, Hospitalization, Other)
  Sender: FDA-Public Use
  Company Number: US-ELI_LILLY_AND_COMPANY-US201110002996

PATIENT
  Age: 57 Year
  Sex: Male
  Weight: 92.063 kg

DRUGS (3)
  1. ASPIRIN [Concomitant]
     Dosage: 325 MG, QD
  2. WARFARIN SODIUM [Concomitant]
  3. EFFIENT [Suspect]
     Indication: IN-STENT ARTERIAL RESTENOSIS
     Dosage: 10 MG, QD
     Dates: start: 20101112, end: 20110413

REACTIONS (4)
  - HAEMORRHAGE INTRACRANIAL [None]
  - CARDIAC ANEURYSM [None]
  - EJECTION FRACTION DECREASED [None]
  - INTRACARDIAC THROMBUS [None]
